FAERS Safety Report 5563560-3 (Version None)
Quarter: 2007Q4

REPORT INFORMATION
  Report Type: 
  Country: None (occurrence: None)
  Receive Date: 20071217
  Receipt Date: 20070716
  Transmission Date: 20080405
  Serious: No
  Sender: FDA-Public Use
  Company Number: US-ASTRAZENECA-2007UW16890

PATIENT
  Age: 52 Year
  Sex: Female

DRUGS (4)
  1. CRESTOR [Suspect]
     Route: 048
     Dates: start: 20070601
  2. DOXEPIN HCL [Concomitant]
  3. ATIVAN [Concomitant]
  4. ATENOLOL [Concomitant]

REACTIONS (1)
  - HOT FLUSH [None]
